FAERS Safety Report 15082192 (Version 1)
Quarter: 2018Q2

REPORT INFORMATION
  Report Type: Report from Study
  Country: US (occurrence: US)
  Receive Date: 20180628
  Receipt Date: 20180628
  Transmission Date: 20180711
  Serious: Yes (Hospitalization)
  Sender: FDA-Public Use
  Company Number: US-EISAI MEDICAL RESEARCH-EC-2017-028625

PATIENT
  Sex: Female
  Weight: 98 kg

DRUGS (23)
  1. TRAZODONE [Concomitant]
     Active Substance: TRAZODONE HYDROCHLORIDE
  2. CEPHALEXIN. [Concomitant]
     Active Substance: CEPHALEXIN
  3. LENVIMA [Suspect]
     Active Substance: LENVATINIB
     Indication: THYROID CANCER
     Route: 048
     Dates: start: 20170523, end: 2017
  4. LENVIMA [Suspect]
     Active Substance: LENVATINIB
     Route: 048
     Dates: start: 2017, end: 2017
  5. TOPROL XL [Concomitant]
     Active Substance: METOPROLOL SUCCINATE
  6. ONDANSETRON [Concomitant]
     Active Substance: ONDANSETRON
  7. ZITHROMAX [Concomitant]
     Active Substance: AZITHROMYCIN DIHYDRATE
  8. POTASSIUM [Concomitant]
     Active Substance: POTASSIUM
  9. VENTOLIN [Concomitant]
     Active Substance: ALBUTEROL SULFATE
  10. BUMETANIDE. [Concomitant]
     Active Substance: BUMETANIDE
  11. CALCITROL [Concomitant]
     Active Substance: CALCITRIOL
  12. SYNTHROID [Concomitant]
     Active Substance: LEVOTHYROXINE SODIUM
  13. PROMETHAZINE [Concomitant]
     Active Substance: PROMETHAZINE\PROMETHAZINE HYDROCHLORIDE
  14. XARELTO [Concomitant]
     Active Substance: RIVAROXABAN
  15. LOSARTAN-HCTZ [Concomitant]
     Active Substance: HYDROCHLOROTHIAZIDE\LOSARTAN
  16. NIFEDIPINE. [Concomitant]
     Active Substance: NIFEDIPINE
  17. LEVOTHYROXINE. [Concomitant]
     Active Substance: LEVOTHYROXINE
  18. FUROSEMIDE. [Concomitant]
     Active Substance: FUROSEMIDE
  19. LENVIMA [Suspect]
     Active Substance: LENVATINIB
     Route: 048
     Dates: start: 2017, end: 201806
  20. HYDRALAZINE [Concomitant]
     Active Substance: HYDRALAZINE HYDROCHLORIDE
  21. OLANZAPINE. [Concomitant]
     Active Substance: OLANZAPINE
  22. MORPHINE [Concomitant]
     Active Substance: MORPHINE
  23. XGEVA [Concomitant]
     Active Substance: DENOSUMAB

REACTIONS (9)
  - Skin ulcer [Not Recovered/Not Resolved]
  - Dysphonia [Not Recovered/Not Resolved]
  - Asthenia [Unknown]
  - Nausea [Unknown]
  - Stomatitis [Not Recovered/Not Resolved]
  - Blood carbon monoxide increased [Unknown]
  - Hypertension [Not Recovered/Not Resolved]
  - Cerebrovascular accident [Not Recovered/Not Resolved]
  - Myalgia [Not Recovered/Not Resolved]

NARRATIVE: CASE EVENT DATE: 2017
